FAERS Safety Report 9819843 (Version 1)
Quarter: 2014Q1

REPORT INFORMATION
  Report Type: Spontaneous
  Country: US (occurrence: None)
  Receive Date: 20140114
  Receipt Date: 20140114
  Transmission Date: 20141002
  Serious: No
  Sender: FDA-Public Use
  Company Number: None

PATIENT
  Age: 59 Year
  Sex: Male

DRUGS (1)
  1. SUTENT [Suspect]
     Indication: RENAL CANCER
     Dosage: 50 MG DAILY 4 WEEKS ON AND 2 WEEKS OFF PO
     Route: 048
     Dates: start: 20130513, end: 20140101

REACTIONS (1)
  - Gastric disorder [None]
